FAERS Safety Report 25435324 (Version 1)
Quarter: 2025Q2

REPORT INFORMATION
  Report Type: Report from Study
  Country: US (occurrence: US)
  Receive Date: 20250613
  Receipt Date: 20250613
  Transmission Date: 20250717
  Serious: Yes (Other)
  Sender: ABBVIE
  Company Number: US-ABBVIE-6318847

PATIENT
  Age: 28 Year
  Sex: Female

DRUGS (1)
  1. HUMIRA [Suspect]
     Active Substance: ADALIMUMAB
     Indication: Crohn^s disease
     Route: 058
     Dates: start: 20250530

REACTIONS (9)
  - Seizure [Unknown]
  - Exposure via eye contact [Unknown]
  - Device difficult to use [Not Recovered/Not Resolved]
  - Anal fistula [Unknown]
  - Intestinal stenosis [Unknown]
  - Gastritis [Unknown]
  - Gastrointestinal examination abnormal [Unknown]
  - Device issue [Unknown]
  - Crohn^s disease [Unknown]

NARRATIVE: CASE EVENT DATE: 20250101
